FAERS Safety Report 10152482 (Version 1)
Quarter: 2014Q2

REPORT INFORMATION
  Report Type: Spontaneous
  Country: BR (occurrence: BR)
  Receive Date: 20140505
  Receipt Date: 20140505
  Transmission Date: 20141212
  Serious: Yes (Other)
  Sender: FDA-Public Use
  Company Number: BR-SA-2014SA053663

PATIENT
  Age: 52 Year
  Sex: Female
  Weight: 80 kg

DRUGS (7)
  1. LANTUS [Suspect]
     Indication: TYPE 2 DIABETES MELLITUS
     Route: 058
     Dates: start: 2012
  2. DEVICE NOS [Concomitant]
     Indication: DEVICE THERAPY
  3. NATRILIX [Concomitant]
     Indication: DIURETIC THERAPY
     Route: 048
  4. AAS INFANTIL [Concomitant]
     Indication: CEREBROVASCULAR ACCIDENT
     Dosage: AFTER LUNCH
     Route: 048
  5. LOSARTAN [Concomitant]
     Indication: HYPERTENSION
     Route: 048
  6. ATENSINA [Concomitant]
     Indication: HYPERTENSION
     Route: 048
  7. NOVOLIN [Concomitant]
     Indication: TYPE 2 DIABETES MELLITUS
     Dosage: 10 IU^S BEFORE MEALS (30 MINS BEFORE MEALS)
     Route: 058

REACTIONS (3)
  - Glaucoma [Not Recovered/Not Resolved]
  - Cataract [Not Recovered/Not Resolved]
  - Vision blurred [Not Recovered/Not Resolved]
